FAERS Safety Report 19319462 (Version 13)
Quarter: 2022Q2

REPORT INFORMATION
  Report Type: Report from Study
  Country: IE (occurrence: IE)
  Receive Date: 20210527
  Receipt Date: 20220426
  Transmission Date: 20220721
  Serious: Yes (Other)
  Sender: FDA-Public Use
  Company Number: IE-SHIRE-IE202010955

PATIENT
  Age: 62 Year
  Sex: Male

DRUGS (31)
  1. HUMAN IMMUNOGLOBULIN G [Suspect]
     Active Substance: HUMAN IMMUNOGLOBULIN G
     Indication: Peripheral motor neuropathy
     Dosage: 100 GRAM
     Route: 042
     Dates: start: 20190205
  2. HUMAN IMMUNOGLOBULIN G [Suspect]
     Active Substance: HUMAN IMMUNOGLOBULIN G
     Indication: Sjogren^s syndrome
     Dosage: 100 GRAM
     Route: 042
     Dates: start: 20210915
  3. HUMAN IMMUNOGLOBULIN G [Suspect]
     Active Substance: HUMAN IMMUNOGLOBULIN G
     Indication: Neuropathy peripheral
     Dosage: 100 GRAM
     Route: 042
     Dates: start: 20190205
  4. HUMAN IMMUNOGLOBULIN G [Suspect]
     Active Substance: HUMAN IMMUNOGLOBULIN G
     Dosage: 100 GRAM
     Dates: start: 20190205
  5. HUMAN IMMUNOGLOBULIN G [Suspect]
     Active Substance: HUMAN IMMUNOGLOBULIN G
     Dosage: 100 GRAM
     Route: 042
     Dates: start: 20190205
  6. HUMAN IMMUNOGLOBULIN G [Suspect]
     Active Substance: HUMAN IMMUNOGLOBULIN G
     Dosage: UNK
     Route: 042
     Dates: start: 20200303, end: 20200303
  7. HUMAN IMMUNOGLOBULIN G [Suspect]
     Active Substance: HUMAN IMMUNOGLOBULIN G
     Dosage: 100 GRAM
     Dates: start: 20190205
  8. HUMAN IMMUNOGLOBULIN G [Suspect]
     Active Substance: HUMAN IMMUNOGLOBULIN G
     Dosage: 100 GRAM
     Dates: start: 20190205
  9. HUMAN IMMUNOGLOBULIN G [Suspect]
     Active Substance: HUMAN IMMUNOGLOBULIN G
     Dosage: UNK
  10. KIOVIG [Suspect]
     Active Substance: HUMAN IMMUNOGLOBULIN G
     Indication: Peripheral motor neuropathy
     Dosage: 100 GRAM
     Route: 042
     Dates: start: 20190205
  11. KIOVIG [Suspect]
     Active Substance: HUMAN IMMUNOGLOBULIN G
     Indication: Neuropathy peripheral
     Dosage: UNK
     Route: 042
     Dates: start: 20200303
  12. KIOVIG [Suspect]
     Active Substance: HUMAN IMMUNOGLOBULIN G
     Indication: Sjogren^s syndrome
     Dosage: 100 GRAM
     Dates: start: 20190205
  13. KIOVIG [Suspect]
     Active Substance: HUMAN IMMUNOGLOBULIN G
     Dosage: 100 GRAM
     Dates: start: 20190205
  14. KIOVIG [Suspect]
     Active Substance: HUMAN IMMUNOGLOBULIN G
     Dosage: 100 GRAM
     Dates: start: 20190205
  15. IMURAN                             /00001501/ [Concomitant]
     Indication: Product used for unknown indication
     Dosage: 50 MILLIGRAM, BID
  16. GABAPENTIN [Concomitant]
     Active Substance: GABAPENTIN
     Indication: Product used for unknown indication
     Dosage: 100 MILLIGRAM
     Route: 050
  17. HYDROXYCHLOROQUINE DIPHOSPHATE [Concomitant]
     Active Substance: HYDROXYCHLOROQUINE DIPHOSPHATE
     Indication: Product used for unknown indication
     Dosage: 200 MILLIGRAM, BID
  18. PREDNISOLONE [Concomitant]
     Active Substance: PREDNISOLONE
     Indication: Product used for unknown indication
     Dosage: 2.5 MILLIGRAM, QD
     Route: 050
  19. PREDNISOLONE [Concomitant]
     Active Substance: PREDNISOLONE
     Dosage: UNK
  20. PREDNISOLONE [Concomitant]
     Active Substance: PREDNISOLONE
  21. PREDNISOLONE [Concomitant]
     Active Substance: PREDNISOLONE
     Dosage: 2.5 MILLIGRAM, QD
     Route: 050
  22. BISOPROLOL FUMARATE [Concomitant]
     Active Substance: BISOPROLOL FUMARATE
     Indication: Product used for unknown indication
     Dosage: 2.5 MILLIGRAM, QD
     Route: 050
  23. OLMESARTAN MEDOXOMIL [Concomitant]
     Active Substance: OLMESARTAN MEDOXOMIL
     Indication: Product used for unknown indication
     Dosage: 20 MILLIGRAM, QD
     Route: 050
  24. ASPIRIN [Concomitant]
     Active Substance: ASPIRIN
     Indication: Product used for unknown indication
     Dosage: 75 MILLIGRAM, QD
     Route: 050
  25. ROSUVASTATIN [Concomitant]
     Active Substance: ROSUVASTATIN
     Indication: Product used for unknown indication
     Dosage: 20 MILLIGRAM, QD
     Route: 050
  26. AMITRIPTYLINE [Concomitant]
     Active Substance: AMITRIPTYLINE
     Indication: Product used for unknown indication
     Dosage: 25 MILLIGRAM, QD
     Route: 050
  27. BICALUTAMIDE [Concomitant]
     Active Substance: BICALUTAMIDE
     Indication: Product used for unknown indication
     Dosage: 50 MILLIGRAM, ONCE DAILY
     Route: 050
  28. TRIPTORELIN [Concomitant]
     Active Substance: TRIPTORELIN
     Indication: Product used for unknown indication
     Dosage: UNK
     Route: 050
  29. TRIPTORELIN [Concomitant]
     Active Substance: TRIPTORELIN
     Dosage: 1 UNK, 3/MONTH
     Route: 050
  30. TRIPTORELIN [Concomitant]
     Active Substance: TRIPTORELIN
     Dosage: UNK, 3/MONTH
     Route: 050
  31. TRIPTORELIN [Concomitant]
     Active Substance: TRIPTORELIN
     Dosage: UNK, 3/MONTH
     Route: 050

REACTIONS (27)
  - Hypoaesthesia [Not Recovered/Not Resolved]
  - Grip strength decreased [Unknown]
  - Chest pain [Recovering/Resolving]
  - Pallor [Unknown]
  - Lethargy [Unknown]
  - Nasopharyngitis [Recovered/Resolved]
  - Poor venous access [Unknown]
  - Flushing [Not Recovered/Not Resolved]
  - Angiogram [Recovered/Resolved]
  - Weight decreased [Not Recovered/Not Resolved]
  - Urinary hesitation [Not Recovered/Not Resolved]
  - Prostatic specific antigen increased [Not Recovered/Not Resolved]
  - Urinary tract infection [Not Recovered/Not Resolved]
  - Post procedural discomfort [Recovered/Resolved]
  - Post procedural haemorrhage [Unknown]
  - Prostate cancer [Not Recovered/Not Resolved]
  - Bone cancer [Not Recovered/Not Resolved]
  - Dehydration [Recovered/Resolved]
  - Flank pain [Not Recovered/Not Resolved]
  - Inappropriate schedule of product administration [Recovered/Resolved]
  - Myalgia [Recovered/Resolved]
  - Poor quality sleep [Not Recovered/Not Resolved]
  - Hyperhidrosis [Unknown]
  - Tremor [Not Recovered/Not Resolved]
  - Drug ineffective [Unknown]
  - Sensory disturbance [Recovered/Resolved]
  - Extra dose administered [Unknown]

NARRATIVE: CASE EVENT DATE: 20200303
